FAERS Safety Report 9220166 (Version 1)
Quarter: 2013Q2

REPORT INFORMATION
  Report Type: Spontaneous
  Country: IT (occurrence: None)
  Receive Date: 20130405
  Receipt Date: 20130405
  Transmission Date: 20140414
  Serious: Yes (Other)
  Sender: FDA-Public Use
  Company Number: AUR-APL-2013-02718

PATIENT
  Age: 42 Year
  Sex: Female

DRUGS (2)
  1. AMOXICILLIN (AMOXICILLIN) [Suspect]
     Dates: start: 20130215, end: 20130215
  2. KETOPROFEN [Suspect]
     Dates: start: 20130215, end: 20130215

REACTIONS (3)
  - Cyanosis [None]
  - Malaise [None]
  - Pruritus generalised [None]
